FAERS Safety Report 9925249 (Version 1)
Quarter: 2014Q1

REPORT INFORMATION
  Report Type: Spontaneous
  Country: US (occurrence: None)
  Receive Date: 20140225
  Receipt Date: 20140225
  Transmission Date: 20141002
  Serious: Yes (Other)
  Sender: FDA-Public Use
  Company Number: None

PATIENT
  Age: 58 Year
  Sex: Female
  Weight: 69.4 kg

DRUGS (6)
  1. LIDOCAINE PATCH [Suspect]
     Indication: NEUROPATHY PERIPHERAL
     Dosage: 5 PCT APPLIED TO SKIN
     Dates: start: 20140201
  2. PREDNISONE [Concomitant]
  3. AMITRIPTYLINE [Concomitant]
  4. REPLAX [Concomitant]
  5. FLEXERIL [Concomitant]
  6. ESGIC [Concomitant]

REACTIONS (1)
  - Application site rash [None]
